FAERS Safety Report 23472581 (Version 2)
Quarter: 2024Q1

REPORT INFORMATION
  Report Type: Report from Study
  Country: US (occurrence: US)
  Receive Date: 20240202
  Receipt Date: 20240226
  Transmission Date: 20240410
  Serious: No
  Sender: FDA-Public Use
  Company Number: US-ALXN-202401USA001921US

PATIENT
  Sex: Female

DRUGS (2)
  1. STRENSIQ [Suspect]
     Active Substance: ASFOTASE ALFA
     Indication: Hypophosphatasia
     Dosage: UNK
     Route: 065
  2. PREDNISONE [Concomitant]
     Active Substance: PREDNISONE
     Indication: Product used for unknown indication
     Dosage: UNK
     Route: 065
     Dates: start: 202308

REACTIONS (5)
  - Lung opacity [Unknown]
  - Exercise tolerance decreased [Unknown]
  - Rib fracture [Recovered/Resolved]
  - Respiration abnormal [Not Recovered/Not Resolved]
  - Hypermobility syndrome [Recovered/Resolved]

NARRATIVE: CASE EVENT DATE: 20230701
